FAERS Safety Report 21601511 (Version 1)
Quarter: 2022Q4

REPORT INFORMATION
  Report Type: Other
  Country: None (occurrence: JP)
  Receive Date: 20221116
  Receipt Date: 20221116
  Transmission Date: 20230112
  Serious: Yes (Hospitalization)
  Sender: FDA-Public Use
  Company Number: JP-MLV Pharma LLC-2134942

PATIENT
  Age: 55 Year
  Sex: Female

DRUGS (3)
  1. BETAMETHASONE DIPROPIONATE [Suspect]
     Active Substance: BETAMETHASONE DIPROPIONATE
     Indication: Conjunctival hyperaemia
     Route: 047
     Dates: start: 20220117
  2. TACROLIMUS 0.1% [Suspect]
     Active Substance: TACROLIMUS
     Route: 047
     Dates: start: 20220117
  3. PREDNISOLONE [Suspect]
     Active Substance: PREDNISOLONE
     Route: 048

REACTIONS (2)
  - Drug ineffective [Unknown]
  - Blood immunoglobulin G increased [Unknown]
